FAERS Safety Report 21909666 (Version 8)
Quarter: 2024Q3

REPORT INFORMATION
  Report Type: Spontaneous
  Country: BR (occurrence: BR)
  Receive Date: 20230125
  Receipt Date: 20240716
  Transmission Date: 20241017
  Serious: Yes (Other)
  Sender: GLAXOSMITHKLINE
  Company Number: BR-GLAXOSMITHKLINE-BR2020AMR110371

PATIENT

DRUGS (6)
  1. NUCALA [Suspect]
     Active Substance: MEPOLIZUMAB
     Indication: Asthma
     Dosage: 100 MG, Q4W
     Route: 042
     Dates: start: 20191031
  2. TRELEGY ELLIPTA [Suspect]
     Active Substance: FLUTICASONE FUROATE\UMECLIDINIUM BROMIDE\VILANTEROL TRIFENATATE
     Indication: Asthma
     Dosage: 1 DF, QD, USES ONCE A DAY
  3. NUCALA [Suspect]
     Active Substance: MEPOLIZUMAB
     Indication: Asthma
     Dosage: 100 MG, Q4W
     Dates: start: 20191031
  4. DEXILANT [Suspect]
     Active Substance: DEXLANSOPRAZOLE
     Indication: Gastrointestinal disorder
     Dosage: UNK
  5. CITALOPRAM [Suspect]
     Active Substance: CITALOPRAM\CITALOPRAM HYDROBROMIDE
     Indication: Product used for unknown indication
     Dosage: UNK
  6. AMITRIPTYLINE [Suspect]
     Active Substance: AMITRIPTYLINE
     Indication: Product used for unknown indication
     Dosage: UNK

REACTIONS (26)
  - Embolism [Recovered/Resolved]
  - Cardiac arrest [Unknown]
  - Surgery [Unknown]
  - COVID-19 [Recovered/Resolved]
  - SARS-CoV-2 test positive [Unknown]
  - Malaise [Unknown]
  - Productive cough [Unknown]
  - Chronic sinusitis [Unknown]
  - Condition aggravated [Unknown]
  - Rhinitis [Unknown]
  - Asthma [Not Recovered/Not Resolved]
  - Dyspnoea [Recovered/Resolved]
  - Swelling [Unknown]
  - Dental operation [Unknown]
  - Varicose vein [Unknown]
  - Fear of injection [Unknown]
  - Thyroid disorder [Unknown]
  - Fall [Unknown]
  - Pain [Recovered/Resolved]
  - Oropharyngeal pain [Recovered/Resolved]
  - Cough [Recovered/Resolved]
  - Product use in unapproved indication [Unknown]
  - Inappropriate schedule of product administration [Unknown]
  - Product dose omission issue [Unknown]
  - Product supply issue [Unknown]
  - Wrong technique in product usage process [Unknown]

NARRATIVE: CASE EVENT DATE: 20221227
